FAERS Safety Report 14663715 (Version 3)
Quarter: 2019Q1

REPORT INFORMATION
  Report Type: Spontaneous
  Country: US (occurrence: US)
  Receive Date: 20180321
  Receipt Date: 20190207
  Transmission Date: 20190417
  Serious: No
  Sender: FDA-Public Use
  Company Number: US-PFIZER INC-2018114674

PATIENT
  Age: 70 Year
  Sex: Male

DRUGS (2)
  1. SUTENT [Suspect]
     Active Substance: SUNITINIB MALATE
     Indication: RENAL CANCER METASTATIC
     Dosage: 37.5 MG, CYCLIC (EVERY DAY FOR 2 WEEKS ON, 1 WEEK OFF)
     Route: 048
  2. SUTENT [Suspect]
     Active Substance: SUNITINIB MALATE
     Dosage: 37.5 MG, CYCLIC (TAKE 1 CAPSULE BY MOUTH EVERY DAY FOR 2 WEEKS ON, 1 WEEK OFF)
     Route: 048
     Dates: start: 20180307

REACTIONS (9)
  - Alopecia [Not Recovered/Not Resolved]
  - Glossodynia [Not Recovered/Not Resolved]
  - Neoplasm progression [Unknown]
  - Weight decreased [Not Recovered/Not Resolved]
  - Decreased appetite [Not Recovered/Not Resolved]
  - Oral pain [Unknown]
  - Dysgeusia [Not Recovered/Not Resolved]
  - Nausea [Unknown]
  - Visual impairment [Not Recovered/Not Resolved]
